FAERS Safety Report 14180556 (Version 1)
Quarter: 2017Q4

REPORT INFORMATION
  Report Type: Report from Study
  Country: US (occurrence: US)
  Receive Date: 20171110
  Receipt Date: 20171110
  Transmission Date: 20180321
  Serious: Yes (Hospitalization)
  Sender: FDA-Public Use
  Company Number: US-THERATECHNOLOGIES, INC.-TH-2017-00335

PATIENT

DRUGS (12)
  1. DOLUTEGRAVIR [Concomitant]
     Active Substance: DOLUTEGRAVIR
     Indication: HIV INFECTION
     Dosage: 50 MG MILLIGRAM(S), QD
     Route: 048
     Dates: start: 20150402
  2. 3TC [Concomitant]
     Active Substance: LAMIVUDINE
     Indication: HIV INFECTION
     Dosage: 150 MG MILLIGRAM(S), QD
     Route: 048
     Dates: start: 20110315
  3. RITONAVIR. [Concomitant]
     Active Substance: RITONAVIR
     Indication: HIV INFECTION
     Dosage: 100 MG MILLIGRAM(S), QD
     Route: 048
     Dates: start: 20141001
  4. FENOFIBRATE. [Concomitant]
     Active Substance: FENOFIBRATE
     Indication: HYPERLIPIDAEMIA
     Dosage: 145 MG MILLIGRAM(S), QD
     Route: 048
     Dates: start: 20140218
  5. DARUNAVIR [Concomitant]
     Active Substance: DARUNAVIR
     Indication: HIV INFECTION
     Dosage: 800 MG MILLIGRAM(S), QD
     Route: 048
     Dates: start: 20141001
  6. ASPIRIN. [Concomitant]
     Active Substance: ASPIRIN
     Indication: CARDIOVASCULAR EVENT PROPHYLAXIS
     Dosage: 81 MG MILLIGRAM(S), QD
     Route: 048
     Dates: start: 20150527
  7. LISINOPRIL. [Concomitant]
     Active Substance: LISINOPRIL
     Indication: NEPHROPATHY
     Dosage: 2.5 MG MILLIGRAM(S), QD
     Route: 048
     Dates: start: 20150629
  8. GLIPIZIDE. [Concomitant]
     Active Substance: GLIPIZIDE
     Indication: DIABETES MELLITUS
     Dosage: 10 MG MILLIGRAM(S), QD
     Route: 048
     Dates: start: 20170126
  9. NO STUDY MEDICATION [Suspect]
     Active Substance: UNSPECIFIED INGREDIENT
  10. ROSUVASTATIN. [Concomitant]
     Active Substance: ROSUVASTATIN
     Indication: HYPERLIPIDAEMIA
     Dosage: 20 MG MILLIGRAM(S), QD
     Route: 048
     Dates: start: 20140218
  11. METFORMIN [Concomitant]
     Active Substance: METFORMIN HYDROCHLORIDE
     Indication: DIABETES MELLITUS
     Dosage: 500 MG MILLIGRAM(S), BID
     Route: 048
     Dates: start: 20140218
  12. METOPROLOL. [Concomitant]
     Active Substance: METOPROLOL
     Indication: HYPERTENSION
     Dosage: 25 MG MILLIGRAM(S), QD
     Route: 048
     Dates: start: 20140903

REACTIONS (1)
  - Pancreatitis [Recovered/Resolved with Sequelae]

NARRATIVE: CASE EVENT DATE: 20170721
